FAERS Safety Report 4899602-8 (Version None)
Quarter: 2006Q1

REPORT INFORMATION
  Report Type: 
  Country: None (occurrence: None)
  Receive Date: 20060118
  Receipt Date: 20050805
  Transmission Date: 20060701
  Serious: No
  Sender: FDA-Public Use
  Company Number: 2005001548

PATIENT
  Age: 68 Year
  Sex: Male

DRUGS (3)
  1. TARCEVA [Suspect]
     Indication: RENAL CELL CARCINOMA STAGE UNSPECIFIED
     Dosage: 25 MG (QD), ORAL ; 50 MG (QD), ORAL ; 100 MG (QD), ORAL
     Route: 048
  2. AVASTIN [Suspect]
     Indication: RENAL CELL CARCINOMA STAGE UNSPECIFIED
     Dosage: 5 MG/KG,INTRAVENOUS ; 10 MG/KG,INTRAVENOUS
     Route: 042
  3. RAPIMUNE [Concomitant]

REACTIONS (3)
  - DIARRHOEA [None]
  - PALMAR-PLANTAR ERYTHRODYSAESTHESIA SYNDROME [None]
  - RASH [None]
